FAERS Safety Report 24164457 (Version 1)
Quarter: 2024Q3

REPORT INFORMATION
  Report Type: Spontaneous
  Country: DE (occurrence: DE)
  Receive Date: 20240801
  Receipt Date: 20240801
  Transmission Date: 20241017
  Serious: Yes (Other)
  Sender: SANDOZ
  Company Number: DE-SANDOZ-SDZ2024DE069660

PATIENT
  Sex: Female

DRUGS (3)
  1. OLANZAPINE [Suspect]
     Active Substance: OLANZAPINE
     Indication: Product used for unknown indication
     Dosage: 10 MG
     Route: 065
  2. OLANZAPINE [Suspect]
     Active Substance: OLANZAPINE
     Dosage: 15 MG; MELTABLE TABLET
     Route: 065
     Dates: start: 20240730
  3. ABILIFY [Concomitant]
     Active Substance: ARIPIPRAZOLE
     Indication: Product used for unknown indication
     Dosage: 5 MG
     Route: 065

REACTIONS (22)
  - Suicidal behaviour [Unknown]
  - Suicidal ideation [Unknown]
  - Illness [Unknown]
  - Hallucination [Unknown]
  - Fear of death [Unknown]
  - Psychotic disorder [Unknown]
  - Abnormal behaviour [Unknown]
  - Anger [Unknown]
  - Feeling abnormal [Unknown]
  - Pain [Unknown]
  - Blepharospasm [Unknown]
  - Emotional distress [Unknown]
  - Psychiatric symptom [Unknown]
  - Hangover [Unknown]
  - Menstruation delayed [Unknown]
  - Suspiciousness [Unknown]
  - Confusional state [Unknown]
  - Insomnia [Unknown]
  - Dry mouth [Unknown]
  - Malaise [Unknown]
  - Aggression [Unknown]
  - Overdose [Unknown]
